FAERS Safety Report 25035270 (Version 1)
Quarter: 2025Q1

REPORT INFORMATION
  Report Type: Spontaneous
  Country: US (occurrence: US)
  Receive Date: 20250304
  Receipt Date: 20250304
  Transmission Date: 20250408
  Serious: Yes (Hospitalization, Other)
  Sender: ROCHE
  Company Number: US-ROCHE-10000213604

PATIENT
  Sex: Female

DRUGS (10)
  1. PERTUZUMAB [Suspect]
     Active Substance: PERTUZUMAB
     Indication: Chemotherapy
     Route: 065
     Dates: start: 202206, end: 202209
  2. PERTUZUMAB [Suspect]
     Active Substance: PERTUZUMAB
     Route: 065
     Dates: start: 20230604, end: 20230803
  3. KADCYLA [Suspect]
     Active Substance: ADO-TRASTUZUMAB EMTANSINE
     Indication: Product used for unknown indication
     Route: 065
     Dates: start: 20221125
  4. KADCYLA [Suspect]
     Active Substance: ADO-TRASTUZUMAB EMTANSINE
     Route: 065
     Dates: start: 20230316
  5. XELODA [Suspect]
     Active Substance: CAPECITABINE
     Indication: Product used for unknown indication
     Route: 048
  6. TUKYSA [Suspect]
     Active Substance: TUCATINIB
     Indication: Product used for unknown indication
     Dosage: (150MG TAB + 50 MG TAB)
     Route: 048
  7. TUKYSA [Suspect]
     Active Substance: TUCATINIB
     Route: 065
  8. TUKYSA [Suspect]
     Active Substance: TUCATINIB
     Route: 065
  9. ANASTROZOLE [Concomitant]
     Active Substance: ANASTROZOLE
     Dates: start: 20230308, end: 20230426
  10. LETROZOLE [Concomitant]
     Active Substance: LETROZOLE
     Dates: start: 20230426

REACTIONS (12)
  - Diarrhoea [Unknown]
  - Hypokalaemia [Unknown]
  - COVID-19 [Unknown]
  - Neuropathy peripheral [Unknown]
  - Rash [Unknown]
  - Dermatitis [Recovered/Resolved]
  - Palmar-plantar erythrodysaesthesia syndrome [Unknown]
  - Herpes zoster [Unknown]
  - Asthenia [Unknown]
  - Intracranial mass [Unknown]
  - Arthralgia [Unknown]
  - Myalgia [Unknown]

NARRATIVE: CASE EVENT DATE: 20230808
